FAERS Safety Report 7784267-8 (Version None)
Quarter: 2011Q3

REPORT INFORMATION
  Report Type: 
  Country: None (occurrence: None)
  Receive Date: 20110928
  Receipt Date: 20110915
  Transmission Date: 20111222
  Serious: Yes (Other)
  Sender: FDA-Public Use
  Company Number: PHEH2011US04513

PATIENT
  Sex: Female

DRUGS (3)
  1. DIOVAN HCT [Suspect]
     Dosage: 1 DF, QD (160 MG OF VALS AND 25 MG HYD)
  2. LEVOXYL [Concomitant]
     Dosage: UNK
  3. DIOVAN HCT [Suspect]
     Dosage: 1 DF, QD (160MG OF VALS AND 12 MG OF HYD)

REACTIONS (1)
  - CORONARY ARTERY OCCLUSION [None]
